FAERS Safety Report 7907519-7 (Version None)
Quarter: 2011Q4

REPORT INFORMATION
  Report Type: 
  Country: None (occurrence: None)
  Receive Date: 20111110
  Receipt Date: 20111031
  Transmission Date: 20120403
  Serious: Yes (Other)
  Sender: FDA-Public Use
  Company Number: PHHY2011DE83634

PATIENT
  Sex: Female
  Weight: 77 kg

DRUGS (3)
  1. LEVOTHYROXINE SODIUM [Concomitant]
     Indication: AUTOIMMUNE THYROIDITIS
     Dosage: UNK UKN, UNK
     Route: 048
     Dates: start: 20070101
  2. FEMARA [Suspect]
     Indication: BREAST CANCER
     Dosage: 2.5 MG, DAILY
     Route: 048
     Dates: start: 20080120, end: 20110701
  3. METOPROLOL TARTRATE [Concomitant]
     Indication: HYPERTENSION
     Dosage: UNK UKN, UNK
     Route: 048
     Dates: start: 20060101

REACTIONS (8)
  - POLYNEUROPATHY [None]
  - MUSCULAR WEAKNESS [None]
  - MONOPARESIS [None]
  - MUSCLE SPASMS [None]
  - MICTURITION URGENCY [None]
  - MUSCLE TWITCHING [None]
  - BLADDER DISORDER [None]
  - ABASIA [None]
